FAERS Safety Report 24880152 (Version 3)
Quarter: 2025Q1

REPORT INFORMATION
  Report Type: Spontaneous
  Country: US (occurrence: US)
  Receive Date: 20250123
  Receipt Date: 20250224
  Transmission Date: 20250408
  Serious: No
  Sender: PFIZER
  Company Number: US-PFIZER INC-PV202500008677

PATIENT
  Age: 8 Year
  Sex: Male
  Weight: 27.9 kg

DRUGS (6)
  1. GENOTROPIN [Suspect]
     Active Substance: SOMATROPIN
     Indication: Hypopituitarism
  2. GENOTROPIN [Suspect]
     Active Substance: SOMATROPIN
     Indication: Growth hormone deficiency
  3. GENOTROPIN [Suspect]
     Active Substance: SOMATROPIN
     Indication: Short stature
  4. GENOTROPIN [Suspect]
     Active Substance: SOMATROPIN
     Indication: Growth retardation
  5. GENOTROPIN [Suspect]
     Active Substance: SOMATROPIN
     Indication: Blood corticotrophin decreased
  6. GENOTROPIN [Suspect]
     Active Substance: SOMATROPIN
     Indication: Magnetic resonance imaging head abnormal

REACTIONS (1)
  - Haemoglobin increased [Unknown]
